FAERS Safety Report 6812234-7 (Version None)
Quarter: 2010Q2

REPORT INFORMATION
  Report Type: 
  Country: None (occurrence: None)
  Receive Date: 20100628
  Receipt Date: 20100615
  Transmission Date: 20101027
  Serious: Yes (Hospitalization)
  Sender: FDA-Public Use
  Company Number: 1-23056386

PATIENT
  Age: 39 Year
  Sex: Female

DRUGS (9)
  1. BACTRIM DS [Suspect]
     Indication: BONE MARROW TOXICITY
     Dosage: 800 MG DAILY, ORAL
     Route: 048
     Dates: start: 20080430, end: 20080704
  2. MYCOPHENOLATE MOFETIL [Suspect]
     Indication: IMMUNOSUPPRESSANT DRUG THERAPY
     Dosage: 1000 MG, TWICE DAILY, ORAL
     Route: 048
     Dates: start: 20080330, end: 20080702
  3. CP-690,550 [Suspect]
     Indication: KIDNEY TRANSPLANT REJECTION
     Dosage: 15 MG, TWICE DAILY
     Dates: start: 20080331, end: 20080702
  4. ROVALCYTE (VALGANCICLOVIR) [Suspect]
     Indication: BONE MARROW TOXICITY
     Dosage: 900 MG, DAILY
     Dates: start: 20080430, end: 20080709
  5. OMEPRAZOLE [Concomitant]
  6. SODIUM BICARBONATE [Concomitant]
  7. AMLODIPINE BESYLATE [Concomitant]
  8. ATENOLOL [Concomitant]
  9. PREDNISONE AND JAK-3 [Concomitant]

REACTIONS (12)
  - ANAEMIA [None]
  - BLOOD CREATININE INCREASED [None]
  - CYTOMEGALOVIRUS INFECTION [None]
  - DRUG INTERACTION [None]
  - EPSTEIN-BARR VIRUS INFECTION [None]
  - HERPES SIMPLEX [None]
  - HUMAN HERPESVIRUS 6 INFECTION [None]
  - LEUKOPENIA [None]
  - LYMPHOCELE [None]
  - NEUTROPENIA [None]
  - REFUSAL OF TREATMENT BY PATIENT [None]
  - RENAL HAEMATOMA [None]
